FAERS Safety Report 20483519 (Version 1)
Quarter: 2022Q1

REPORT INFORMATION
  Report Type: Spontaneous
  Country: FR (occurrence: FR)
  Receive Date: 20220217
  Receipt Date: 20220217
  Transmission Date: 20220423
  Serious: Yes (Congenital Anomaly)
  Sender: FDA-Public Use
  Company Number: FR-ABBVIE-22K-056-4282248-00

PATIENT

DRUGS (1)
  1. VALPROATE SODIUM [Suspect]
     Active Substance: VALPROATE SODIUM
     Indication: Exposure via grandmother
     Route: 065

REACTIONS (11)
  - Ear, nose and throat examination abnormal [Unknown]
  - Developmental coordination disorder [Unknown]
  - Spina bifida [Unknown]
  - Scoliosis [Unknown]
  - Autism spectrum disorder [Unknown]
  - Psychomotor hyperactivity [Unknown]
  - Eye disorder [Unknown]
  - Behaviour disorder [Unknown]
  - Transgenerational epigenetic inheritance [Unknown]
  - Exposure via grandmother [Unknown]
  - Foetal exposure during pregnancy [Unknown]
